FAERS Safety Report 6100399-4 (Version None)
Quarter: 2009Q1

REPORT INFORMATION
  Report Type: 
  Country: None (occurrence: None)
  Receive Date: 20090226
  Receipt Date: 20090210
  Transmission Date: 20090719
  Serious: Yes (Other)
  Sender: FDA-Public Use
  Company Number: 8042795

PATIENT
  Age: 58 Year
  Sex: Male

DRUGS (1)
  1. LORTAB [Suspect]

REACTIONS (1)
  - ANGIOEDEMA [None]
